FAERS Safety Report 13334477 (Version 3)
Quarter: 2017Q1

REPORT INFORMATION
  Report Type: Spontaneous
  Country: CA (occurrence: CA)
  Receive Date: 20170314
  Receipt Date: 20170329
  Transmission Date: 20170428
  Serious: Yes (Other)
  Sender: FDA-Public Use
  Company Number: CA-JNJFOC-20170312228

PATIENT
  Age: 72 Year
  Sex: Female

DRUGS (2)
  1. XARELTO [Suspect]
     Active Substance: RIVAROXABAN
     Indication: PULMONARY EMBOLISM
     Route: 048
     Dates: start: 20170105
  2. XARELTO [Suspect]
     Active Substance: RIVAROXABAN
     Indication: PULMONARY EMBOLISM
     Route: 048

REACTIONS (9)
  - Bronchitis [Unknown]
  - Cystitis [Unknown]
  - Anxiety [Unknown]
  - Dry skin [Unknown]
  - Cough [Unknown]
  - Skin fissures [Unknown]
  - Contusion [Unknown]
  - Pollakiuria [Unknown]
  - Chest discomfort [Unknown]
